FAERS Safety Report 8420053-3 (Version None)
Quarter: 2012Q2

REPORT INFORMATION
  Report Type: 
  Country: None (occurrence: None)
  Receive Date: 20120607
  Receipt Date: 20120607
  Transmission Date: 20120825
  Serious: Yes (Death)
  Sender: FDA-Public Use
  Company Number: GR-PFIZER INC-2010146589

PATIENT
  Sex: Male

DRUGS (16)
  1. LEVODOPA [Suspect]
     Indication: PARKINSON'S DISEASE
  2. PRAMIPEXOLE [Suspect]
     Indication: PARKINSON'S DISEASE
  3. QUETIAPINE [Suspect]
     Indication: PARKINSON'S DISEASE
  4. ROTIGOTINE [Suspect]
     Indication: PARKINSON'S DISEASE
  5. AMANTADINE HCL [Suspect]
     Indication: PARKINSON'S DISEASE
  6. ROTIGOTINE [Suspect]
     Indication: PSYCHOTIC DISORDER
  7. HEPARIN [Suspect]
  8. PRAMIPEXOLE [Suspect]
     Indication: PSYCHOTIC DISORDER
  9. LEVODOPA [Suspect]
     Indication: PSYCHOTIC DISORDER
  10. CARBIDOPA [Suspect]
     Indication: PARKINSON'S DISEASE
  11. PIPERACILLIN/TAZOBACTAM [Suspect]
  12. QUETIAPINE [Suspect]
     Indication: PSYCHOTIC DISORDER
  13. PIRACETAM [Suspect]
     Indication: PARKINSON'S DISEASE
  14. AMANTADINE HCL [Suspect]
     Indication: PSYCHOTIC DISORDER
  15. CARBIDOPA [Suspect]
     Indication: PSYCHOTIC DISORDER
  16. PIRACETAM [Suspect]
     Indication: PSYCHOTIC DISORDER

REACTIONS (1)
  - NO ADVERSE EVENT [None]
